FAERS Safety Report 16853627 (Version 1)
Quarter: 2019Q4

REPORT INFORMATION
  Report Type: Spontaneous
  Country: US (occurrence: US)
  Receive Date: 20190925
  Receipt Date: 20190925
  Transmission Date: 20200122
  Serious: Yes (Hospitalization)
  Sender: FDA-Public Use
  Company Number: None

PATIENT
  Sex: Female

DRUGS (17)
  1. FUROSEMIDE. [Concomitant]
     Active Substance: FUROSEMIDE
  2. VITAMIN B12 [Concomitant]
     Active Substance: CYANOCOBALAMIN
  3. CARVEDILOL. [Concomitant]
     Active Substance: CARVEDILOL
  4. FLUTIC/SALME AEROSOL [Concomitant]
  5. FOLIC ACID. [Concomitant]
     Active Substance: FOLIC ACID
  6. AMLODIPINE [Concomitant]
     Active Substance: AMLODIPINE BESYLATE
  7. METOPROLOL. [Concomitant]
     Active Substance: METOPROLOL
  8. ALLOPURINOL. [Concomitant]
     Active Substance: ALLOPURINOL
  9. IRBESARTAN. [Concomitant]
     Active Substance: IRBESARTAN
  10. METFORMIN [Concomitant]
     Active Substance: METFORMIN HYDROCHLORIDE
  11. BOSULIF [Suspect]
     Active Substance: BOSUTINIB MONOHYDRATE
     Indication: CHRONIC MYELOID LEUKAEMIA
     Route: 048
     Dates: start: 20190702
  12. ATORVASTATIN [Concomitant]
     Active Substance: ATORVASTATIN
  13. ALBUTEROL. [Concomitant]
     Active Substance: ALBUTEROL
  14. FEROSUL [Concomitant]
  15. POTASSIUM [Concomitant]
     Active Substance: POTASSIUM
  16. WARFARIN [Concomitant]
     Active Substance: WARFARIN
  17. WIXELA AEROSOL [Concomitant]

REACTIONS (4)
  - Pulmonary oedema [None]
  - Therapy cessation [None]
  - Nausea [None]
  - Dyspnoea [None]
